FAERS Safety Report 13301410 (Version 1)
Quarter: 2017Q1

REPORT INFORMATION
  Report Type: Spontaneous
  Country: US (occurrence: US)
  Receive Date: 20170307
  Receipt Date: 20170307
  Transmission Date: 20170428
  Serious: No
  Sender: FDA-Public Use
  Company Number: US-DEPOMED, INC.-US-2016DEP009664

PATIENT

DRUGS (6)
  1. HUMALOG [Concomitant]
     Active Substance: INSULIN LISPRO
     Indication: BLOOD GLUCOSE FLUCTUATION
     Dosage: SLIDING SCALE BASED ON BLOOD SUGARS RESULT
     Dates: start: 2015
  2. LANTUS [Concomitant]
     Active Substance: INSULIN GLARGINE
     Indication: DIABETES MELLITUS
     Dosage: 50 UNITS, QD, TAKES AT NIGHT TIME
  3. OXYCODONE [Concomitant]
     Active Substance: OXYCODONE
     Indication: BREAKTHROUGH PAIN
     Dosage: 10 MG, TID
     Dates: start: 2008
  4. GRALISE [Suspect]
     Active Substance: GABAPENTIN
     Indication: NEUROPATHY PERIPHERAL
     Dosage: 600 MG, QID
     Route: 048
     Dates: end: 2016
  5. FENTANYL. [Concomitant]
     Active Substance: FENTANYL
     Indication: PAIN
     Dosage: 100 ?G, CHANGES PATCH ONCE EVERY 2 DAYS
     Dates: start: 2008
  6. SYNTHROID [Concomitant]
     Active Substance: LEVOTHYROXINE SODIUM
     Indication: HYPOTHYROIDISM
     Dosage: .125 ?G, QD, TAKING SINCE AGE 20
     Route: 048

REACTIONS (5)
  - Scar [Not Recovered/Not Resolved]
  - Fall [Not Recovered/Not Resolved]
  - Hypoaesthesia [Not Recovered/Not Resolved]
  - Product use issue [Recovered/Resolved]
  - Drug dose titration not performed [Not Recovered/Not Resolved]

NARRATIVE: CASE EVENT DATE: 2016
